FAERS Safety Report 17028881 (Version 1)
Quarter: 2019Q4

REPORT INFORMATION
  Report Type: Spontaneous
  Country: IT (occurrence: IT)
  Receive Date: 20191114
  Receipt Date: 20191114
  Transmission Date: 20200122
  Serious: Yes (Hospitalization)
  Sender: FDA-Public Use
  Company Number: IT-EDENBRIDGE PHARMACEUTICALS, LLC-IT-2019EDE000067

PATIENT
  Age: 25 Year
  Sex: Male

DRUGS (1)
  1. ALBENDAZOLE. [Suspect]
     Active Substance: ALBENDAZOLE
     Indication: FILARIASIS
     Dosage: 200 MG, BID
     Route: 065

REACTIONS (1)
  - Toxic encephalopathy [Recovered/Resolved]
